FAERS Safety Report 8783398 (Version 2)
Quarter: 2012Q4

REPORT INFORMATION
  Report Type: 
  Country: US (occurrence: US)
  Receive Date: 20120913
  Receipt Date: 20121107
  Transmission Date: 20130627
  Serious: No
  Sender: FDA-Public Use
  Company Number: US-ASTRAZENECA-2012SE65515

PATIENT
  Age: 63 Year
  Sex: Female

DRUGS (3)
  1. VIMOVO [Suspect]
     Route: 048
  2. TOPROL XL [Suspect]
     Route: 048
  3. CRESTOR [Suspect]
     Route: 048

REACTIONS (3)
  - Arthropathy [Unknown]
  - Post procedural complication [Unknown]
  - Drug dose omission [Unknown]
